FAERS Safety Report 11757252 (Version 1)
Quarter: 2015Q4

REPORT INFORMATION
  Report Type: Spontaneous
  Country: DK (occurrence: DK)
  Receive Date: 20151120
  Receipt Date: 20151120
  Transmission Date: 20160304
  Serious: Yes (Other)
  Sender: FDA-Public Use
  Company Number: DK-ACCORD-035386

PATIENT
  Sex: Female

DRUGS (3)
  1. LEVETIRACETAM STADA [Suspect]
     Active Substance: LEVETIRACETAM
     Indication: PRODUCT USED FOR UNKNOWN INDICATION
     Dates: end: 20150130
  2. LAMOTRIGINE. [Suspect]
     Active Substance: LAMOTRIGINE
     Indication: SEIZURE
  3. LEVETIRACETAM. [Suspect]
     Active Substance: LEVETIRACETAM
     Indication: PRODUCT USED FOR UNKNOWN INDICATION
     Dates: start: 20141230

REACTIONS (20)
  - Amnesia [Unknown]
  - Somnolence [Unknown]
  - Presyncope [Unknown]
  - Chest discomfort [Unknown]
  - Decreased appetite [Unknown]
  - Dizziness [Not Recovered/Not Resolved]
  - Visual impairment [Unknown]
  - Hypersomnia [Unknown]
  - Poisoning [Unknown]
  - Lethargy [Unknown]
  - Malaise [Unknown]
  - Vision blurred [Unknown]
  - Psychomotor skills impaired [Unknown]
  - Balance disorder [Not Recovered/Not Resolved]
  - Dyspnoea [Unknown]
  - Eye pain [Unknown]
  - Disturbance in attention [Unknown]
  - Hyperventilation [Unknown]
  - Impaired work ability [Unknown]
  - Fatigue [Unknown]
